FAERS Safety Report 7907604-X (Version None)
Quarter: 2011Q4

REPORT INFORMATION
  Report Type: 
  Country: None (occurrence: None)
  Receive Date: 20111110
  Receipt Date: 20111105
  Transmission Date: 20120403
  Serious: Yes (Other)
  Sender: FDA-Public Use
  Company Number: PHHY2011MX098202

PATIENT
  Age: 48 Year
  Sex: Female

DRUGS (1)
  1. EXFORGE HCT [Suspect]
     Indication: HYPERTENSION
     Dosage: 1 DF (320 MG VALS, 10 MG MG AMLO AND 12.5 MG HYDRO), DAILY
     Dates: start: 20090801

REACTIONS (2)
  - LIMB INJURY [None]
  - ROAD TRAFFIC ACCIDENT [None]
